FAERS Safety Report 4345168-0 (Version None)
Quarter: 2004Q2

REPORT INFORMATION
  Report Type: 
  Country: None (occurrence: None)
  Receive Date: 20040420
  Receipt Date: 20040407
  Transmission Date: 20050107
  Serious: Yes (Hospitalization)
  Sender: FDA-Public Use
  Company Number: A02200401242

PATIENT
  Age: 68 Year
  Sex: Female

DRUGS (12)
  1. PLAVIX [Suspect]
     Indication: ATHEROSCLEROSIS
     Dosage: 75 MG OD , ORAL
     Route: 048
  2. KARDEGIC - (ACETYLSALICYLIC LYSINE) [Suspect]
     Indication: ACUTE MYOCARDIAL INFARCTION
     Dosage: 75 MG OD  , ORAL
     Route: 048
     Dates: end: 20031101
  3. APROVEL (IRBESARTAN) [Concomitant]
  4. ALLOPURINOL [Concomitant]
  5. SERC [Concomitant]
  6. SECTRAL [Concomitant]
  7. GAVISCON [Concomitant]
  8. IMOVANE            (ZOPICLONE) [Concomitant]
  9. LIORESAL [Concomitant]
  10. PRAVASTATIN SODIUM [Concomitant]
  11. CORDARONE [Concomitant]
  12. OMEPRAZOLE [Concomitant]

REACTIONS (11)
  - ASTHENIA [None]
  - ATRIAL FIBRILLATION [None]
  - C-REACTIVE PROTEIN INCREASED [None]
  - DISORIENTATION [None]
  - HAEMANGIOMA [None]
  - INFLAMMATION [None]
  - IRON DEFICIENCY [None]
  - LEUKOCYTOSIS [None]
  - MICROCYTIC ANAEMIA [None]
  - PYREXIA [None]
  - RESPIRATORY FAILURE [None]
